FAERS Safety Report 7374581-2 (Version None)
Quarter: 2011Q1

REPORT INFORMATION
  Report Type: 
  Country: None (occurrence: None)
  Receive Date: 20110325
  Receipt Date: 20100331
  Transmission Date: 20110831
  Serious: No
  Sender: FDA-Public Use
  Company Number: US-MYLANLABS-2010S1005705

PATIENT
  Age: 52 Year
  Sex: Female

DRUGS (2)
  1. FENTANYL-100 [Suspect]
     Indication: NECK PAIN
     Dosage: CHANGED PATCHES Q3D
     Route: 062
     Dates: start: 20100301
  2. FENTANYL-100 [Suspect]
     Indication: BACK PAIN
     Dosage: CHANGED PATCHES Q3D
     Route: 062
     Dates: start: 20100301

REACTIONS (4)
  - BACK PAIN [None]
  - NECK PAIN [None]
  - DRUG INEFFECTIVE [None]
  - DRUG WITHDRAWAL SYNDROME [None]
